FAERS Safety Report 15370945 (Version 1)
Quarter: 2018Q3

REPORT INFORMATION
  Report Type: Spontaneous
  Country: US (occurrence: US)
  Receive Date: 20180905
  Receipt Date: 20180905
  Transmission Date: 20181010
  Serious: Yes (Hospitalization)
  Sender: FDA-Public Use
  Company Number: None

PATIENT
  Age: 61 Year
  Sex: Male

DRUGS (13)
  1. TRULICITY 1.5/0.5 [Concomitant]
  2. JARDIANCE [Concomitant]
     Active Substance: EMPAGLIFLOZIN
  3. FUROSEMIDE 20MG [Concomitant]
     Active Substance: FUROSEMIDE
  4. MYCOPHENOLATE 500MG TABLETS [Suspect]
     Active Substance: MYCOPHENOLIC ACID
     Route: 048
     Dates: start: 20180122
  5. SIROLIMUS 1MG TABLET [Suspect]
     Active Substance: SIROLIMUS
     Route: 048
     Dates: start: 20180513
  6. CARVEDILOL 3.125MG [Concomitant]
  7. METFORMIN [Concomitant]
     Active Substance: METFORMIN HYDROCHLORIDE
  8. AUGMENTIN 875/125 [Concomitant]
  9. BROM/PSE/DM SYRUP [Concomitant]
  10. LEVOFLOXACIN 500MG [Concomitant]
     Active Substance: LEVOFLOXACIN
  11. FLUDROCORT 0.1MG [Concomitant]
  12. PROAIR HFA [Concomitant]
     Active Substance: ALBUTEROL SULFATE
  13. CEFDINIR 300MG CAP [Concomitant]

REACTIONS (1)
  - Pneumonia [None]
